FAERS Safety Report 20222457 (Version 1)
Quarter: 2021Q4

REPORT INFORMATION
  Report Type: Other
  Country: US (occurrence: None)
  Receive Date: 20211223
  Receipt Date: 20211223
  Transmission Date: 20220303
  Serious: Yes (Hospitalization)
  Sender: FDA-Public Use
  Company Number: US-ROCHE-2981473

PATIENT
  Sex: Male
  Weight: 82.174 kg

DRUGS (5)
  1. AVASTIN [Suspect]
     Active Substance: BEVACIZUMAB
     Indication: Retinal vein occlusion
     Dosage: NO
     Route: 050
     Dates: end: 2016
  2. LUCENTIS [Suspect]
     Active Substance: RANIBIZUMAB
     Indication: Retinal vein occlusion
     Dosage: YES
     Route: 050
     Dates: start: 2016
  3. LUCENTIS [Suspect]
     Active Substance: RANIBIZUMAB
     Indication: Macular oedema
  4. COUMADIN [Concomitant]
     Active Substance: WARFARIN SODIUM
     Indication: Coagulopathy
     Dosage: NO
     Route: 048
  5. COUMADIN [Concomitant]
     Active Substance: WARFARIN SODIUM
     Dosage: DOSE ADJUSTED BASED ON INR ;ONGOING: YES
     Route: 048

REACTIONS (7)
  - Myocardial infarction [Recovered/Resolved]
  - Transient ischaemic attack [Not Recovered/Not Resolved]
  - Coagulopathy [Not Recovered/Not Resolved]
  - Psoriasis [Recovered/Resolved]
  - Pain [Recovered/Resolved]
  - Cataract [Recovered/Resolved]
  - Off label use [Unknown]
